FAERS Safety Report 6143230-3 (Version None)
Quarter: 2009Q2

REPORT INFORMATION
  Report Type: 
  Country: None (occurrence: None)
  Receive Date: 20090403
  Receipt Date: 20090401
  Transmission Date: 20091009
  Serious: Yes (Hospitalization)
  Sender: FDA-Public Use
  Company Number: US-BRISTOL-MYERS SQUIBB COMPANY-14546170

PATIENT
  Age: 58 Year
  Sex: Female
  Weight: 46 kg

DRUGS (3)
  1. IXABEPILONE [Suspect]
     Indication: NON-SMALL CELL LUNG CANCER
     Dosage: START DATE OF FIRST TREATMENT:05MAR09. NO OF COURSE 1 TOTAL DOSE:45MG
     Route: 042
     Dates: start: 20090305, end: 20090305
  2. CARBOPLATIN [Suspect]
     Indication: NON-SMALL CELL LUNG CANCER
     Dosage: START DATE OF FIRST TREATMENT:05MAR09. NO OF COURSE 1 1 DOSAGE FORM = (AUC=5) TOTAL DOSE:750MG
     Route: 042
     Dates: start: 20090305, end: 20090305
  3. BEVACIZUMAB [Suspect]
     Indication: NON-SMALL CELL LUNG CANCER
     Dosage: START DATE OF FIRST TREATMENT:05MAR09. NO OF COURSE 1 TOTAL DOSE: 702MG
     Route: 042
     Dates: start: 20090305, end: 20090305

REACTIONS (6)
  - ASTHENIA [None]
  - DEHYDRATION [None]
  - FATIGUE [None]
  - NAUSEA [None]
  - PAIN [None]
  - VOMITING [None]
